FAERS Safety Report 7155163-4 (Version None)
Quarter: 2010Q4

REPORT INFORMATION
  Report Type: 
  Country: None (occurrence: None)
  Receive Date: 20101214
  Receipt Date: 20091125
  Transmission Date: 20110411
  Serious: Yes (Other)
  Sender: FDA-Public Use
  Company Number: US-AMGEN-QUU368348

PATIENT

DRUGS (10)
  1. ENBREL [Suspect]
     Indication: RHEUMATOID ARTHRITIS
     Dosage: 50 MG, QWK
     Route: 058
     Dates: start: 20090714
  2. METHOTREXATE [Concomitant]
     Dosage: 2.5 MG, QWK
     Route: 048
     Dates: start: 20061001
  3. EXEMESTANE [Concomitant]
     Dosage: 25 MG, UNK
     Dates: start: 20061001
  4. NABUMETONE [Concomitant]
     Dosage: 750 MG, UNK
     Dates: start: 20061001
  5. ACETAMINOPHEN AND HYDROCODONE BITARTRATE [Concomitant]
     Dosage: UNK UNK, UNK
     Dates: start: 20061001
  6. PANTOPRAZOLE SODIUM [Concomitant]
     Dosage: 40 MG, UNK
     Dates: start: 20061001
  7. FOLIC ACID [Concomitant]
     Dosage: 1 MG, UNK
     Dates: start: 20061001
  8. RALOXIFEN HCL [Concomitant]
     Dosage: 60 MG, UNK
     Dates: start: 20090714
  9. TRILEPTAL [Concomitant]
     Dosage: 600 MG, UNK
     Dates: start: 20090714
  10. ZONISAMIDE [Concomitant]
     Dosage: 100 MG, UNK
     Dates: start: 20091006

REACTIONS (1)
  - CONVULSION [None]
